FAERS Safety Report 10327364 (Version 2)
Quarter: 2015Q1

REPORT INFORMATION
  Report Type: Spontaneous
  Country: IT (occurrence: IT)
  Receive Date: 20140721
  Receipt Date: 20150109
  Transmission Date: 20150720
  Serious: Yes (Hospitalization)
  Sender: FDA-Public Use
  Company Number: IT-ROCHE-1435071

PATIENT
  Age: 39 Year
  Sex: Male

DRUGS (3)
  1. RIBAVIRIN. [Suspect]
     Active Substance: RIBAVIRIN
     Indication: CHRONIC HEPATITIS C
     Route: 048
     Dates: start: 20131101, end: 20140131
  2. METHADONE HYDROCHLORIDE. [Concomitant]
     Active Substance: METHADONE HYDROCHLORIDE
     Indication: POLYSUBSTANCE DEPENDENCE
  3. PEGASYS [Suspect]
     Active Substance: PEGINTERFERON ALFA-2A
     Indication: CHRONIC HEPATITIS C
     Dosage: 180 MCG SOLUTION FOR SUBCUTANEOUS USE
     Route: 058
     Dates: start: 20131101, end: 20140131

REACTIONS (2)
  - Radiculopathy [Recovering/Resolving]
  - Mononeuropathy [Recovering/Resolving]

NARRATIVE: CASE EVENT DATE: 20140131
